FAERS Safety Report 6745893-8 (Version None)
Quarter: 2010Q2

REPORT INFORMATION
  Report Type: 
  Country: None (occurrence: None)
  Receive Date: 20100528
  Receipt Date: 20100519
  Transmission Date: 20101027
  Serious: Yes (Other)
  Sender: FDA-Public Use
  Company Number: US-JNJFOC-20090607807

PATIENT
  Sex: Male

DRUGS (10)
  1. LEVAQUIN [Suspect]
     Indication: UPPER RESPIRATORY TRACT INFECTION
     Route: 048
  2. LEVAQUIN [Suspect]
     Indication: BRONCHITIS
     Route: 048
  3. LEVAQUIN [Suspect]
     Indication: SINUSITIS
     Route: 048
  4. LEVAQUIN [Suspect]
     Indication: CELLULITIS
     Route: 048
  5. LEVAQUIN [Suspect]
     Indication: LUNG INFECTION
     Route: 048
  6. LEVAQUIN [Suspect]
     Route: 042
  7. LEVAQUIN [Suspect]
     Route: 042
  8. PREDNISONE TAB [Suspect]
     Indication: CHRONIC OBSTRUCTIVE PULMONARY DISEASE
     Route: 065
  9. CIPROFLOXACIN [Suspect]
     Indication: DRUG USE FOR UNKNOWN INDICATION
     Route: 065
  10. CLINDAMYCIN [Concomitant]
     Route: 065

REACTIONS (3)
  - MUSCLE ATROPHY [None]
  - TENDON RUPTURE [None]
  - TENDONITIS [None]
